FAERS Safety Report 25974659 (Version 1)
Quarter: 2025Q4

REPORT INFORMATION
  Report Type: Spontaneous
  Country: EU (occurrence: EU)
  Receive Date: 20251029
  Receipt Date: 20251029
  Transmission Date: 20260119
  Serious: Yes (Hospitalization)
  Sender: PFIZER
  Company Number: EU-ROCHE-1155510

PATIENT
  Age: 65 Year
  Sex: Female
  Weight: 84 kg

DRUGS (11)
  1. EPIRUBICIN HYDROCHLORIDE [Suspect]
     Active Substance: EPIRUBICIN HYDROCHLORIDE
     Indication: Breast cancer female
     Dosage: 100 MG/M2, EVERY 3 WEEKS (LAST DOSE PRIOR TO SAE)
     Route: 042
     Dates: start: 20120828, end: 20121009
  2. DOCETAXEL [Suspect]
     Active Substance: DOCETAXEL
     Indication: Breast cancer female
     Dosage: LAST DOSE PRIOR TO SAE: 14/NOV/2012. WITHDRAWN FROM STUDY.FREQUENCY TEXT:200 UNITS
     Route: 042
     Dates: end: 20121127
  3. FLUOROURACIL [Suspect]
     Active Substance: FLUOROURACIL
     Indication: Breast cancer female
     Dosage: UNIT: 1000, LAST DOSE PRIOR TO SAE: 09/OCT/2012
     Route: 042
     Dates: start: 20120828, end: 20121009
  4. PERTUZUMAB [Suspect]
     Active Substance: PERTUZUMAB
     Indication: Breast cancer female
     Dosage: LOADING DOSE AS PER PROTOCOL. LAST DOSE PRIOR TO SAE: 12/NOV/2012. WITHDRAWN FROM STUDY
     Route: 042
     Dates: start: 20121112, end: 20121127
  5. PERTUZUMAB [Suspect]
     Active Substance: PERTUZUMAB
     Dosage: MAINTENANCE DOSE
     Route: 042
  6. PERTUZUMAB [Suspect]
     Active Substance: PERTUZUMAB
     Dosage: UNK UNK, EVERY 3 WEEKS
     Route: 042
  7. TRASTUZUMAB [Suspect]
     Active Substance: TRASTUZUMAB
     Indication: Breast cancer female
     Dosage: 840 MG. WITHDRAWN FROM STUDY. LAST DOSE PRIOR TO SAE ON 12/NOV/2012FREQUENCY TEXT:8 MG/KG
     Route: 042
     Dates: start: 20121112
  8. CYCLOPHOSPHAMIDE [Suspect]
     Active Substance: CYCLOPHOSPHAMIDE
     Indication: Breast cancer female
     Dosage: WITHDRAWN FROM STUDY
     Route: 042
     Dates: start: 20120828
  9. ACETAMINOPHEN [Concomitant]
     Active Substance: ACETAMINOPHEN
     Dosage: UNK
     Dates: start: 20121112, end: 20121112
  10. RANITIDINE [Concomitant]
     Active Substance: RANITIDINE
     Dosage: UNK
     Dates: start: 20121114, end: 20121114
  11. DEXAMETHASONE [Concomitant]
     Active Substance: DEXAMETHASONE
     Dosage: UNK
     Dates: start: 20121114, end: 20121114

REACTIONS (3)
  - Infusion related reaction [Recovered/Resolved]
  - Diarrhoea [Recovered/Resolved]
  - Vomiting [Recovered/Resolved]

NARRATIVE: CASE EVENT DATE: 20121112
